FAERS Safety Report 4439113-7 (Version None)
Quarter: 2004Q3

REPORT INFORMATION
  Report Type: 
  Country: None (occurrence: None)
  Receive Date: 20040901
  Receipt Date: 20040831
  Transmission Date: 20050211
  Serious: Yes (Hospitalization)
  Sender: FDA-Public Use
  Company Number: DE-BRISTOL-MYERS SQUIBB COMPANY-12688008

PATIENT
  Age: 76 Year
  Sex: Male

DRUGS (9)
  1. METHOTREXATE [Suspect]
     Indication: RHEUMATOID ARTHRITIS
  2. CLOPIDOGREL BISULFATE [Suspect]
     Indication: CAROTID ARTERY OCCLUSION
     Route: 048
  3. PANTOPRAZOLE [Suspect]
     Indication: GASTRITIS EROSIVE
  4. TORSEMIDE [Suspect]
     Indication: HYPERTENSION
  5. IBUPROFEN [Concomitant]
     Indication: RHEUMATOID ARTHRITIS
  6. TIMOLOL MALEATE [Concomitant]
     Indication: GLAUCOMA
  7. RAMIPRIL [Concomitant]
     Indication: HYPERTENSION
  8. RAMIPRIL [Concomitant]
     Indication: CARDIAC FAILURE
  9. NADROPARIN CALCIUM [Concomitant]
     Indication: DEEP VEIN THROMBOSIS

REACTIONS (1)
  - THROMBOTIC THROMBOCYTOPENIC PURPURA [None]
